FAERS Safety Report 20382736 (Version 1)
Quarter: 2022Q1

REPORT INFORMATION
  Report Type: Spontaneous
  Country: DE (occurrence: DE)
  Receive Date: 20220127
  Receipt Date: 20220127
  Transmission Date: 20220423
  Serious: Yes (Hospitalization)
  Sender: FDA-Public Use
  Company Number: DE-MYLANLABS-2022M1007317

PATIENT
  Age: 7 Year
  Sex: Female

DRUGS (1)
  1. BACLOFEN [Suspect]
     Active Substance: BACLOFEN
     Indication: Muscle spasticity
     Dosage: UNK, IT BACLOFEN PUMP
     Route: 037

REACTIONS (5)
  - Muscle spasticity [Unknown]
  - Device failure [Unknown]
  - Condition aggravated [Unknown]
  - Abdominal distension [Unknown]
  - Accidental underdose [Unknown]
